FAERS Safety Report 13662483 (Version 1)
Quarter: 2017Q2

REPORT INFORMATION
  Report Type: Other
  Country: US (occurrence: US)
  Receive Date: 20170617
  Receipt Date: 20170617
  Transmission Date: 20170830
  Serious: Yes (Hospitalization, Other)
  Sender: FDA-Public Use
  Company Number: US-HETERO LABS LTD-2022169

PATIENT
  Age: 66 Year
  Sex: Female

DRUGS (1)
  1. LEVOFLOXACIN. [Suspect]
     Active Substance: LEVOFLOXACIN
     Indication: UROSEPSIS
     Route: 048

REACTIONS (2)
  - Mental status changes [Recovering/Resolving]
  - Delirium [Recovering/Resolving]
